FAERS Safety Report 6043531-3 (Version None)
Quarter: 2009Q1

REPORT INFORMATION
  Report Type: 
  Country: None (occurrence: None)
  Receive Date: 20090115
  Receipt Date: 20090109
  Transmission Date: 20090719
  Serious: Yes (Other)
  Sender: FDA-Public Use
  Company Number: FRP09000010

PATIENT
  Sex: Female

DRUGS (1)
  1. ACTONEL [Suspect]
     Indication: OSTEOPOROSIS
     Dosage: 1 /WEEK, ORAL
     Route: 048

REACTIONS (4)
  - DENTAL DISCOMFORT [None]
  - MASTICATION DISORDER [None]
  - SPEECH DISORDER [None]
  - TOOTH LOSS [None]
